FAERS Safety Report 15525027 (Version 1)
Quarter: 2018Q4

REPORT INFORMATION
  Report Type: Report from Study
  Country: DE (occurrence: DE)
  Receive Date: 20181019
  Receipt Date: 20181019
  Transmission Date: 20190205
  Serious: Yes (Other)
  Sender: FDA-Public Use
  Company Number: DE-INCYTE CORPORATION-2018IN010605

PATIENT

DRUGS (68)
  1. EUTHYROX [Concomitant]
     Active Substance: LEVOTHYROXINE SODIUM
     Indication: THYROIDECTOMY
     Dosage: 100 UG, QD
     Route: 048
     Dates: start: 20040506
  2. MARCUMAR [Concomitant]
     Active Substance: PHENPROCOUMON
     Indication: ARRHYTHMIA
  3. EXJADE [Concomitant]
     Active Substance: DEFERASIROX
     Indication: IRON OVERLOAD
     Dosage: 250 MG, QD
     Route: 048
     Dates: start: 20160421, end: 20160421
  4. ERYTHROCYTES [Concomitant]
     Active Substance: HUMAN RED BLOOD CELL
     Dosage: 2 CONCENTRATES, ONCE/SINGLE
     Route: 042
     Dates: start: 20151030, end: 20151030
  5. ERYTHROCYTES [Concomitant]
     Active Substance: HUMAN RED BLOOD CELL
     Dosage: 2 CONCENTRATES, ONCE/SINGLE
     Route: 042
     Dates: start: 20160318, end: 20160318
  6. ERYTHROCYTES [Concomitant]
     Active Substance: HUMAN RED BLOOD CELL
     Dosage: 2 CONCENTRATES, ONCE/SINGLE
     Route: 042
     Dates: start: 20161230, end: 20161230
  7. ERYTHROCYTES [Concomitant]
     Active Substance: HUMAN RED BLOOD CELL
     Dosage: 2 CONCENTRATES, ONCE/SINGLE
     Route: 042
     Dates: start: 20170712, end: 20170712
  8. ERYTHROCYTES [Concomitant]
     Active Substance: HUMAN RED BLOOD CELL
     Dosage: 2 CONCENTRATES, ONCE/SINGLE
     Route: 042
     Dates: start: 20180104, end: 20180104
  9. ERYTHROCYTES [Concomitant]
     Active Substance: HUMAN RED BLOOD CELL
     Dosage: 2 CONCENTRATES, ONCE/SINGLE
     Route: 042
     Dates: start: 20180705, end: 20180705
  10. ELIQUIS [Concomitant]
     Active Substance: APIXABAN
     Indication: THROMBOSIS PROPHYLAXIS
     Dosage: UNK
     Route: 065
  11. RED BLOOD CELLS, CONCENTRATED [Concomitant]
     Active Substance: HUMAN RED BLOOD CELL
     Dosage: 2 OT, UNK
     Route: 065
     Dates: start: 20160205, end: 20160205
  12. JAKAVI [Suspect]
     Active Substance: RUXOLITINIB
     Dosage: 5 MG, BID
     Route: 048
     Dates: start: 20180507, end: 20180806
  13. JAKAVI [Suspect]
     Active Substance: RUXOLITINIB
     Dosage: 5 MG, QD
     Route: 048
     Dates: start: 20180807
  14. SPIROBETA [Concomitant]
     Active Substance: SPIRONOLACTONE
     Indication: BLOOD PRESSURE MEASUREMENT
     Dosage: 50 MG, QD
     Route: 048
     Dates: start: 20060202
  15. INSUMAN COMB [Concomitant]
     Active Substance: INSULIN HUMAN
     Indication: TYPE 2 DIABETES MELLITUS
     Dosage: 30IE AND 32IE (MORNING AND EVENING)
     Route: 058
     Dates: start: 20100922
  16. ERYTHROCYTES [Concomitant]
     Active Substance: HUMAN RED BLOOD CELL
     Indication: ANAEMIA
     Dosage: 2 CONCENTRATES, ONCE/SINGLE
     Route: 042
     Dates: start: 20150212, end: 20150212
  17. ERYTHROCYTES [Concomitant]
     Active Substance: HUMAN RED BLOOD CELL
     Dosage: 2 CONCENTRATES, ONCE/SINGLE
     Route: 042
     Dates: start: 20180413, end: 20180413
  18. RED BLOOD CELLS, CONCENTRATED [Concomitant]
     Active Substance: HUMAN RED BLOOD CELL
     Dosage: 2 OT, UNK
     Route: 065
     Dates: start: 20150521, end: 20150521
  19. RED BLOOD CELLS, CONCENTRATED [Concomitant]
     Active Substance: HUMAN RED BLOOD CELL
     Dosage: 2 OT, UNK
     Route: 065
     Dates: start: 20151210, end: 20151210
  20. EXJADE [Concomitant]
     Active Substance: DEFERASIROX
     Dosage: 500 MG, QD
     Route: 048
     Dates: start: 20180507, end: 20180507
  21. DIGIMERCK [Concomitant]
     Active Substance: DIGITOXIN
     Indication: CARDIOMYOPATHY
     Dosage: 0.05 MG, QD
     Dates: start: 20160727, end: 20160727
  22. ERYTHROCYTES [Concomitant]
     Active Substance: HUMAN RED BLOOD CELL
     Dosage: 2 CONCENTRATES, ONCE/SINGLE
     Route: 042
     Dates: start: 20150521, end: 20150521
  23. ERYTHROCYTES [Concomitant]
     Active Substance: HUMAN RED BLOOD CELL
     Dosage: 2 CONCENTRATES, ONCE/SINGLE
     Route: 042
     Dates: start: 20160513, end: 20160513
  24. ERYTHROCYTES [Concomitant]
     Active Substance: HUMAN RED BLOOD CELL
     Dosage: 2 CONCENTRATES, ONCE/SINGLE
     Route: 042
     Dates: start: 20170411, end: 20170411
  25. ERYTHROCYTES [Concomitant]
     Active Substance: HUMAN RED BLOOD CELL
     Dosage: 2 CONCENTRATES, ONCE/SINGLE
     Route: 042
     Dates: start: 20170505, end: 20170505
  26. ERYTHROCYTES [Concomitant]
     Active Substance: HUMAN RED BLOOD CELL
     Dosage: 2 CONCENTRATES, ONCE/SINGLE
     Route: 042
     Dates: start: 20171025, end: 20171025
  27. RED BLOOD CELLS, CONCENTRATED [Concomitant]
     Active Substance: HUMAN RED BLOOD CELL
     Dosage: 2 OT, UNK
     Route: 065
     Dates: start: 20160422
  28. ERYTHROCYTES [Concomitant]
     Active Substance: HUMAN RED BLOOD CELL
     Dosage: 2 CONCENTRATES, ONCE/SINGLE
     Route: 042
     Dates: start: 20150323, end: 20150323
  29. ERYTHROCYTES [Concomitant]
     Active Substance: HUMAN RED BLOOD CELL
     Dosage: 2 CONCENTRATES, ONCE/SINGLE
     Route: 042
     Dates: start: 20160422, end: 20160422
  30. ERYTHROCYTES [Concomitant]
     Active Substance: HUMAN RED BLOOD CELL
     Dosage: 2 CONCENTRATES, ONCE/SINGLE
     Route: 042
     Dates: start: 20160629, end: 20160629
  31. ERYTHROCYTES [Concomitant]
     Active Substance: HUMAN RED BLOOD CELL
     Dosage: 2 CONCENTRATES, ONCE/SINGLE
     Route: 042
     Dates: start: 20180615, end: 20180615
  32. RED BLOOD CELLS, CONCENTRATED [Concomitant]
     Active Substance: HUMAN RED BLOOD CELL
     Dosage: 2 OT, UNK
     Route: 065
     Dates: start: 20160318, end: 20160318
  33. RED BLOOD CELLS, CONCENTRATED [Concomitant]
     Active Substance: HUMAN RED BLOOD CELL
     Dosage: 2 OT, UNK
     Route: 065
     Dates: start: 20160513, end: 20160513
  34. MARCUMAR [Concomitant]
     Active Substance: PHENPROCOUMON
     Indication: ATRIAL FIBRILLATION
     Dosage: 3 MG, QD
     Route: 048
     Dates: start: 20040505, end: 20161025
  35. EXJADE [Concomitant]
     Active Substance: DEFERASIROX
     Dosage: 500 MG, QD
     Route: 048
     Dates: start: 20161025, end: 20170821
  36. ERYTHROCYTES [Concomitant]
     Active Substance: HUMAN RED BLOOD CELL
     Dosage: 2 CONCENTRATES, ONCE/SINGLE
     Route: 042
     Dates: start: 20161027, end: 20161027
  37. ERYTHROCYTES [Concomitant]
     Active Substance: HUMAN RED BLOOD CELL
     Dosage: 2 CONCENTRATES, ONCE/SINGLE
     Route: 042
     Dates: start: 20170310, end: 20170310
  38. ERYTHROCYTES [Concomitant]
     Active Substance: HUMAN RED BLOOD CELL
     Dosage: 2 CONCENTRATES, ONCE/SINGLE
     Route: 042
     Dates: start: 20180208, end: 20180208
  39. DEFERASIROX. [Concomitant]
     Active Substance: DEFERASIROX
     Indication: PRODUCT USED FOR UNKNOWN INDICATION
     Dosage: UNK
     Route: 065
  40. RED BLOOD CELLS, CONCENTRATED [Concomitant]
     Active Substance: HUMAN RED BLOOD CELL
     Indication: ANAEMIA
     Dosage: 2 OT, UNK
     Route: 065
     Dates: start: 20150212, end: 20150212
  41. RED BLOOD CELLS, CONCENTRATED [Concomitant]
     Active Substance: HUMAN RED BLOOD CELL
     Dosage: 2 OT, UNK
     Route: 065
     Dates: start: 20151229, end: 20151229
  42. VALSARTAN. [Concomitant]
     Active Substance: VALSARTAN
     Indication: CARDIOMYOPATHY
     Dosage: 160 MG, BID
     Route: 048
     Dates: start: 20040506
  43. TORASEMID [Concomitant]
     Active Substance: TORSEMIDE
     Indication: BLOOD PRESSURE MEASUREMENT
     Dosage: 10 MG, QD
     Route: 048
     Dates: start: 20040506, end: 20160727
  44. ERYTHROCYTES [Concomitant]
     Active Substance: HUMAN RED BLOOD CELL
     Dosage: 2 CONCENTRATES, ONCE/SINGLE
     Route: 042
     Dates: start: 20160205, end: 20160205
  45. ERYTHROCYTES [Concomitant]
     Active Substance: HUMAN RED BLOOD CELL
     Dosage: 2 CONCENTRATES, ONCE/SINGLE
     Route: 042
     Dates: start: 20160701, end: 20160701
  46. ERYTHROCYTES [Concomitant]
     Active Substance: HUMAN RED BLOOD CELL
     Dosage: 2 CONCENTRATES, ONCE/SINGLE
     Route: 042
     Dates: start: 20161202, end: 20161202
  47. ERYTHROCYTES [Concomitant]
     Active Substance: HUMAN RED BLOOD CELL
     Dosage: 2 CONCENTRATES, ONCE/SINGLE
     Route: 042
     Dates: start: 20171122, end: 20171122
  48. ERYTHROCYTES [Concomitant]
     Active Substance: HUMAN RED BLOOD CELL
     Dosage: 2 CONCENTRATES, ONCE/SINGLE
     Route: 042
     Dates: start: 20180201, end: 20180201
  49. ERYTHROCYTES [Concomitant]
     Active Substance: HUMAN RED BLOOD CELL
     Dosage: 2 CONCENTRATES, ONCE/SINGLE
     Route: 042
     Dates: start: 20180308, end: 20180308
  50. ERYTHROCYTES [Concomitant]
     Active Substance: HUMAN RED BLOOD CELL
     Dosage: 2 CONCENTRATES, ONCE/SINGLE
     Route: 042
     Dates: start: 20180516, end: 20180516
  51. ERYTHROCYTES [Concomitant]
     Active Substance: HUMAN RED BLOOD CELL
     Dosage: 2 CONCENTRATES, ONCE/SINGLE
     Route: 042
     Dates: start: 20180830, end: 20180830
  52. ELIQUIS [Concomitant]
     Active Substance: APIXABAN
     Indication: ATRIAL FIBRILLATION
  53. TORASEMID [Concomitant]
     Active Substance: TORSEMIDE
     Dosage: 5 MG, QD
     Route: 048
     Dates: start: 20160727
  54. EXJADE [Concomitant]
     Active Substance: DEFERASIROX
     Dosage: 360 MG, QD
     Dates: start: 20170822, end: 20180506
  55. ERYTHROCYTES [Concomitant]
     Active Substance: HUMAN RED BLOOD CELL
     Dosage: 2 CONCENTRATES, ONCE/SINGLE
     Route: 042
     Dates: start: 20151210, end: 20151210
  56. ERYTHROCYTES [Concomitant]
     Active Substance: HUMAN RED BLOOD CELL
     Dosage: 2 CONCENTRATES, ONCE/SINGLE
     Route: 042
     Dates: start: 20170203
  57. ERYTHROCYTES [Concomitant]
     Active Substance: HUMAN RED BLOOD CELL
     Dosage: 2 CONCENTRATES, ONCE/SINGLE
     Route: 042
     Dates: start: 20170823, end: 20170823
  58. ERYTHROCYTES [Concomitant]
     Active Substance: HUMAN RED BLOOD CELL
     Dosage: 2 CONCENTRATES, ONCE/SINGLE
     Route: 042
     Dates: start: 20180810, end: 20180810
  59. RED BLOOD CELLS, CONCENTRATED [Concomitant]
     Active Substance: HUMAN RED BLOOD CELL
     Dosage: 2 OT, UNK
     Route: 065
     Dates: start: 20150325, end: 20150325
  60. JAKAVI [Suspect]
     Active Substance: RUXOLITINIB
     Indication: POLYCYTHAEMIA VERA
     Dosage: 15 MG, QD
     Route: 048
     Dates: start: 20151208, end: 20180201
  61. METOPROLOL SUCCINATE. [Concomitant]
     Active Substance: METOPROLOL SUCCINATE
     Indication: BLOOD PRESSURE MEASUREMENT
     Dosage: 95 MG, BID
     Route: 048
     Dates: start: 20040506
  62. SIOFOR [Concomitant]
     Active Substance: METFORMIN HYDROCHLORIDE
     Indication: TYPE 2 DIABETES MELLITUS
     Dosage: 2000 MG, QD
     Route: 048
     Dates: start: 20040506, end: 20161025
  63. ERYTHROCYTES [Concomitant]
     Active Substance: HUMAN RED BLOOD CELL
     Dosage: 2 CONCENTRATES, ONCE/SINGLE
     Route: 042
     Dates: start: 20151229, end: 20151229
  64. ERYTHROCYTES [Concomitant]
     Active Substance: HUMAN RED BLOOD CELL
     Dosage: 2 CONCENTRATES, ONCE/SINGLE
     Route: 042
     Dates: start: 20170608, end: 20170608
  65. ERYTHROCYTES [Concomitant]
     Active Substance: HUMAN RED BLOOD CELL
     Dosage: 2 CONCENTRATES, ONCE/SINGLE
     Route: 042
     Dates: start: 20170922, end: 20170922
  66. ERYTHROCYTES [Concomitant]
     Active Substance: HUMAN RED BLOOD CELL
     Dosage: 2 CONCENTRATES, ONCE/SINGLE
     Route: 042
     Dates: start: 20171213, end: 20171213
  67. ERYTHROCYTES [Concomitant]
     Active Substance: HUMAN RED BLOOD CELL
     Dosage: 2 CONCENTRATES, ONCE/SINGLE
     Route: 042
     Dates: start: 20180919, end: 20180919
  68. RED BLOOD CELLS, CONCENTRATED [Concomitant]
     Active Substance: HUMAN RED BLOOD CELL
     Dosage: 2 OT, UNK
     Route: 065
     Dates: start: 20151030, end: 20151030

REACTIONS (1)
  - Leukopenia [Not Recovered/Not Resolved]

NARRATIVE: CASE EVENT DATE: 20180806
